FAERS Safety Report 5193916-2 (Version None)
Quarter: 2006Q4

REPORT INFORMATION
  Report Type: 
  Country: None (occurrence: None)
  Receive Date: 20061228
  Receipt Date: 20061110
  Transmission Date: 20070319
  Serious: Yes (Other)
  Sender: FDA-Public Use
  Company Number: 2006UW23671

PATIENT
  Age: 62 Year
  Sex: Female
  Weight: 84.4 kg

DRUGS (4)
  1. SEROQUEL [Suspect]
     Indication: BIPOLAR I DISORDER
     Route: 048
     Dates: start: 20061016
  2. SEROQUEL [Suspect]
     Route: 048
     Dates: start: 20061001
  3. LAMICTAL [Concomitant]
     Indication: BIPOLAR DISORDER
     Route: 048
     Dates: start: 20061003
  4. LITHIUM CARBONATE [Concomitant]
     Indication: BIPOLAR DISORDER
     Route: 048
     Dates: start: 20060830

REACTIONS (6)
  - ACCIDENTAL OVERDOSE [None]
  - BLOOD PRESSURE DECREASED [None]
  - DIZZINESS [None]
  - MEDICATION ERROR [None]
  - SEDATION [None]
  - THINKING ABNORMAL [None]
